FAERS Safety Report 6860473-1 (Version None)
Quarter: 2010Q3

REPORT INFORMATION
  Report Type: 
  Country: None (occurrence: None)
  Receive Date: 20100720
  Receipt Date: 20100628
  Transmission Date: 20110219
  Serious: Yes (Hospitalization)
  Sender: FDA-Public Use
  Company Number: A0795101A

PATIENT
  Age: 52 Year
  Sex: Female

DRUGS (6)
  1. AVANDIA [Suspect]
     Route: 048
     Dates: start: 20000101, end: 20070501
  2. GLUCOPHAGE [Concomitant]
  3. HUMALOG [Concomitant]
  4. LONG ACTING INSULIN [Concomitant]
  5. LIPITOR [Concomitant]
  6. TRICOR [Concomitant]

REACTIONS (5)
  - ANGINA PECTORIS [None]
  - CARDIAC DISORDER [None]
  - CARDIOMYOPATHY [None]
  - CORONARY ARTERY DISEASE [None]
  - THROMBOSIS [None]
